FAERS Safety Report 9726209 (Version 2)
Quarter: 2013Q4

REPORT INFORMATION
  Report Type: Spontaneous
  Country: JP (occurrence: JP)
  Receive Date: 20131203
  Receipt Date: 20131226
  Transmission Date: 20140711
  Serious: Yes (Other)
  Sender: FDA-Public Use
  Company Number: JP-ASTRAZENECA-2013SE73963

PATIENT
  Age: 56 Year
  Sex: Male

DRUGS (13)
  1. CRESTOR [Suspect]
     Indication: DYSLIPIDAEMIA
     Route: 048
     Dates: end: 20130917
  2. CRESTOR [Suspect]
     Indication: DYSLIPIDAEMIA
     Route: 048
     Dates: start: 20130918, end: 20131002
  3. CRESTOR [Suspect]
     Indication: DYSLIPIDAEMIA
     Route: 048
     Dates: start: 20131003
  4. WARFARIN POTASSIUM [Concomitant]
     Route: 065
     Dates: end: 20131002
  5. ZETIA [Concomitant]
     Route: 065
  6. BAYASPIRIN [Concomitant]
     Route: 065
  7. LIPIDIL [Concomitant]
     Route: 065
  8. MAINTATE [Concomitant]
     Route: 065
  9. ITOROL [Concomitant]
     Route: 065
  10. CHOLEBINE [Concomitant]
     Route: 065
  11. SELBEX [Concomitant]
     Route: 065
  12. EPADEL [Concomitant]
     Route: 065
  13. OLMETEC [Concomitant]
     Route: 065

REACTIONS (1)
  - International normalised ratio increased [Recovered/Resolved]
